FAERS Safety Report 20635109 (Version 1)
Quarter: 2022Q1

REPORT INFORMATION
  Report Type: Report from Study
  Country: GB (occurrence: GB)
  Receive Date: 20220325
  Receipt Date: 20220325
  Transmission Date: 20220423
  Serious: Yes (Hospitalization, Other)
  Sender: FDA-Public Use
  Company Number: GB-SA-SAC20220322001026

PATIENT
  Age: 42 Year
  Sex: Female

DRUGS (1)
  1. DUPILUMAB [Suspect]
     Active Substance: DUPILUMAB
     Indication: Dermatitis atopic
     Dosage: UNK
     Route: 058
     Dates: start: 201902

REACTIONS (9)
  - Loss of consciousness [Unknown]
  - Circulatory collapse [Unknown]
  - Hospitalisation [Unknown]
  - Immune system disorder [Unknown]
  - White blood cell disorder [Unknown]
  - Gait disturbance [Unknown]
  - Respiration abnormal [Unknown]
  - Blood test abnormal [Unknown]
  - Dermatitis atopic [Unknown]

NARRATIVE: CASE EVENT DATE: 20220101
